FAERS Safety Report 10414216 (Version 1)
Quarter: 2014Q3

REPORT INFORMATION
  Report Type: Spontaneous
  Country: HU (occurrence: HU)
  Receive Date: 20140827
  Receipt Date: 20140827
  Transmission Date: 20150326
  Serious: Yes (Other)
  Sender: FDA-Public Use
  Company Number: ALCN2014HU004823

PATIENT
  Sex: Female

DRUGS (3)
  1. COMBIGAN [Suspect]
     Active Substance: BRIMONIDINE TARTRATE\TIMOLOL MALEATE
     Indication: GLAUCOMA
     Dosage: 2 GTT, BID (IN THE MORNING AND IN THE EVENING)
     Route: 047
  2. AZOPT [Suspect]
     Active Substance: BRINZOLAMIDE
     Indication: GLAUCOMA
     Dosage: 2 GTT, BID (IN THE MORNING AND IN THE EVENING)
     Route: 047
  3. DUOTRAV POLYQUAD [Suspect]
     Active Substance: TIMOLOL MALEATE\TRAVOPROST
     Indication: GLAUCOMA
     Dosage: 1 GTT, QD (IN THE EVENING)
     Route: 047

REACTIONS (7)
  - Vision blurred [Recovered/Resolved]
  - Retinal vascular thrombosis [Unknown]
  - Abasia [Recovered/Resolved]
  - Headache [Recovered/Resolved]
  - Cataract [Unknown]
  - Dizziness [Recovered/Resolved]
  - Cardiac disorder [Recovered/Resolved]
